FAERS Safety Report 13627087 (Version 5)
Quarter: 2018Q1

REPORT INFORMATION
  Report Type: Spontaneous
  Country: US (occurrence: US)
  Receive Date: 20170607
  Receipt Date: 20180110
  Transmission Date: 20180508
  Serious: No
  Sender: FDA-Public Use
  Company Number: US-PFIZER INC-2017239322

PATIENT
  Age: 9 Year
  Sex: Female
  Weight: 28.58 kg

DRUGS (5)
  1. CLARITIN [Concomitant]
     Active Substance: LORATADINE
     Dosage: 5 MG, DAILY
     Route: 048
  2. CONCERTA [Concomitant]
     Active Substance: METHYLPHENIDATE HYDROCHLORIDE
     Indication: ATTENTION DEFICIT/HYPERACTIVITY DISORDER
     Dosage: 36 MG, 1X/DAY (ONCE A DAY MONDAY THROUGH FRIDAY)
     Route: 048
     Dates: start: 201708
  3. GENOTROPIN [Suspect]
     Active Substance: SOMATROPIN
     Indication: GROWTH HORMONE DEFICIENCY
     Dosage: 1 MG, UNK
     Dates: start: 20170205
  4. GENOTROPIN [Suspect]
     Active Substance: SOMATROPIN
     Dosage: 1 ML, 1X/DAY
     Dates: start: 20170205
  5. GENOTROPIN [Suspect]
     Active Substance: SOMATROPIN
     Indication: GROWTH HORMONE DEFICIENCY
     Dosage: 1 ML, 1X/DAY
     Dates: start: 20170205

REACTIONS (4)
  - Device breakage [Unknown]
  - Syncope [Unknown]
  - Drug dose omission [Recovered/Resolved]
  - Headache [Unknown]

NARRATIVE: CASE EVENT DATE: 20171211
